FAERS Safety Report 6447098-7 (Version None)
Quarter: 2009Q4

REPORT INFORMATION
  Report Type: 
  Country: None (occurrence: None)
  Receive Date: 20091119
  Receipt Date: 20091109
  Transmission Date: 20100525
  Serious: Yes (Other)
  Sender: FDA-Public Use
  Company Number: US-WYE-H12071709

PATIENT
  Sex: Female

DRUGS (3)
  1. PRISTIQ [Suspect]
     Indication: DEPRESSION
     Route: 048
     Dates: start: 20091026
  2. MULTI-VITAMINS [Concomitant]
     Indication: MEDICAL DIET
     Dosage: UNKNOWN
  3. DIOVAN [Concomitant]
     Indication: HYPERTENSION
     Dosage: UNKNOWN

REACTIONS (7)
  - ASTHENIA [None]
  - CRYING [None]
  - DRUG INEFFECTIVE [None]
  - HEADACHE [None]
  - IMPAIRED WORK ABILITY [None]
  - INSOMNIA [None]
  - SUICIDAL IDEATION [None]
